FAERS Safety Report 5494699-9 (Version None)
Quarter: 2007Q4

REPORT INFORMATION
  Report Type: 
  Country: None (occurrence: None)
  Receive Date: 20071023
  Receipt Date: 20071023
  Transmission Date: 20080405
  Serious: Yes (Life-Threatening)
  Sender: FDA-Public Use
  Company Number: None

PATIENT
  Age: 72 Year
  Sex: Male
  Weight: 97.977 kg

DRUGS (2)
  1. HALOPERIDOL [Suspect]
     Indication: AGGRESSION
     Dosage: 0.5 MG IV 1 MG
     Route: 042
     Dates: start: 20071020, end: 20071020
  2. HALOPERIDOL [Suspect]
     Indication: MENTAL STATUS CHANGES
     Dosage: 0.5 MG IV 1 MG
     Route: 042
     Dates: start: 20071020, end: 20071020

REACTIONS (3)
  - AGITATION [None]
  - RESPIRATORY ARREST [None]
  - SKIN DISCOLOURATION [None]
